FAERS Safety Report 19230772 (Version 2)
Quarter: 2022Q3

REPORT INFORMATION
  Report Type: Spontaneous
  Country: CA (occurrence: CA)
  Receive Date: 20210507
  Receipt Date: 20220714
  Transmission Date: 20221026
  Serious: Yes (Hospitalization, Other)
  Sender: FDA-Public Use
  Company Number: CA-NAPPMUNDI-CAN-2021-0012484

PATIENT
  Age: 60 Year
  Sex: Female

DRUGS (8)
  1. THEOPHYLLINE ANHYDROUS [Suspect]
     Active Substance: THEOPHYLLINE ANHYDROUS
     Indication: Asthma
     Dosage: UNK
     Route: 065
  2. FLUTICASONE PROPIONATE\SALMETEROL XINAFOATE [Suspect]
     Active Substance: FLUTICASONE PROPIONATE\SALMETEROL XINAFOATE
     Indication: Asthma
     Dosage: UNK
     Route: 065
  3. IPRATROPIUM BROMIDE [Suspect]
     Active Substance: IPRATROPIUM BROMIDE
     Indication: Asthma
     Dosage: UNK
     Route: 065
  4. MEPOLIZUMAB [Suspect]
     Active Substance: MEPOLIZUMAB
     Indication: Asthma
     Dosage: 100.0 MG, UNK
     Route: 065
  5. MOMETASONE FUROATE [Suspect]
     Active Substance: MOMETASONE FUROATE
     Indication: Asthma
     Dosage: UNK
     Route: 065
  6. PULMICORT TURBUHALER [Suspect]
     Active Substance: BUDESONIDE
     Indication: Asthma
     Dosage: UNK
     Route: 055
  7. QVAR [Suspect]
     Active Substance: BECLOMETHASONE DIPROPIONATE
     Indication: Asthma
     Dosage: UNK
     Route: 055
  8. TIOTROPIUM BROMIDE [Suspect]
     Active Substance: TIOTROPIUM BROMIDE
     Indication: Asthma
     Dosage: 2.0 DF, 1 EVERY 1 DAYS
     Route: 065

REACTIONS (4)
  - Dysstasia [Unknown]
  - Gait inability [Unknown]
  - Transient ischaemic attack [Unknown]
  - Wheelchair user [Unknown]
